FAERS Safety Report 5050351-5 (Version None)
Quarter: 2006Q2

REPORT INFORMATION
  Report Type: 
  Country: None (occurrence: None)
  Receive Date: 20060614
  Receipt Date: 20060331
  Transmission Date: 20061013
  Serious: Yes (Other)
  Sender: FDA-Public Use
  Company Number: 421973

PATIENT
  Sex: Female

DRUGS (4)
  1. BONIVA [Suspect]
     Indication: DRUG USE FOR UNKNOWN INDICATION
     Dosage: ORAL
     Route: 048
     Dates: start: 20051015
  2. EVISTA [Concomitant]
  3. LIPITOR [Concomitant]
  4. DIURETIC (DIURETIC NOS) [Concomitant]

REACTIONS (2)
  - HOT FLUSH [None]
  - SENSATION OF FOREIGN BODY [None]
